FAERS Safety Report 17900315 (Version 1)
Quarter: 2020Q2

REPORT INFORMATION
  Report Type: Spontaneous
  Country: US (occurrence: US)
  Receive Date: 20200616
  Receipt Date: 20200616
  Transmission Date: 20200714
  Serious: No
  Sender: FDA-Public Use
  Company Number: US-PFIZER INC-2020231953

PATIENT
  Age: 64 Year
  Sex: Female

DRUGS (4)
  1. EUCRISA [Suspect]
     Active Substance: CRISABOROLE
     Indication: SKIN EXFOLIATION
  2. EUCRISA [Suspect]
     Active Substance: CRISABOROLE
     Indication: ERYTHEMA
     Dosage: UNK, 2X/DAY [APPLY TO AFFECTED AREA(S) TWICE A DAY]
  3. EUCRISA [Suspect]
     Active Substance: CRISABOROLE
     Indication: PRURITUS
  4. EUCRISA [Suspect]
     Active Substance: CRISABOROLE
     Indication: VITILIGO

REACTIONS (1)
  - Therapeutic product effect incomplete [Unknown]
